FAERS Safety Report 10247436 (Version 1)
Quarter: 2014Q2

REPORT INFORMATION
  Report Type: Report from Study
  Country: CA (occurrence: CA)
  Receive Date: 20140619
  Receipt Date: 20140619
  Transmission Date: 20141212
  Serious: Yes (Hospitalization)
  Sender: FDA-Public Use
  Company Number: CA-BRISTOL-MYERS SQUIBB COMPANY-20999777

PATIENT
  Age: 63 Year
  Sex: Female

DRUGS (2)
  1. ORENCIA FOR INJ [Suspect]
     Indication: RHEUMATOID ARTHRITIS
     Route: 042
     Dates: start: 200901
  2. PLAQUENIL [Concomitant]

REACTIONS (1)
  - Gallbladder disorder [Unknown]
